FAERS Safety Report 9877318 (Version 2)
Quarter: 2014Q1

REPORT INFORMATION
  Report Type: Spontaneous
  Country: US (occurrence: US)
  Receive Date: 20140206
  Receipt Date: 20140206
  Transmission Date: 20141002
  Serious: No
  Sender: FDA-Public Use
  Company Number: US-MYLANLABS-2013S1027709

PATIENT
  Sex: Female
  Weight: 80 kg

DRUGS (1)
  1. MODAFINIL TABLETS USP [Suspect]
     Indication: NARCOLEPSY
     Route: 048
     Dates: start: 20131122, end: 201311

REACTIONS (2)
  - Drug ineffective [Recovered/Resolved]
  - Narcolepsy [Recovered/Resolved]
